FAERS Safety Report 14196504 (Version 1)
Quarter: 2017Q4

REPORT INFORMATION
  Report Type: Spontaneous
  Country: US (occurrence: US)
  Receive Date: 20171116
  Receipt Date: 20171116
  Transmission Date: 20180321
  Serious: Yes (Hospitalization)
  Sender: FDA-Public Use
  Company Number: US-NOVOPROD-541021

PATIENT
  Age: 66 Year
  Sex: Female
  Weight: 136.5 kg

DRUGS (1)
  1. NOVOLOG MIX 70/30 [Suspect]
     Active Substance: INSULIN ASPART
     Indication: TYPE 2 DIABETES MELLITUS
     Dosage: 30 U, BID
     Route: 058

REACTIONS (5)
  - Depression [Recovering/Resolving]
  - Amnesia [Unknown]
  - Hypotonia [Recovering/Resolving]
  - Drug dose omission [Unknown]
  - Diabetic ketoacidosis [Recovering/Resolving]
